FAERS Safety Report 6335342-6 (Version None)
Quarter: 2009Q3

REPORT INFORMATION
  Report Type: 
  Country: None (occurrence: None)
  Receive Date: 20090831
  Receipt Date: 20090819
  Transmission Date: 20100115
  Serious: Yes (Other)
  Sender: FDA-Public Use
  Company Number: FR-ELI_LILLY_AND_COMPANY-FR200908003890

PATIENT
  Sex: Male

DRUGS (12)
  1. ZYPREXA [Suspect]
     Dosage: 10 MG, DAILY (1/D)
     Route: 048
     Dates: start: 20081211, end: 20090302
  2. TIENAM [Concomitant]
     Dates: start: 20081210, end: 20081219
  3. CORTANCYL [Concomitant]
     Dosage: 20 MG, DAILY (1/D)
     Route: 048
     Dates: start: 20081231, end: 20090302
  4. AERIUS [Concomitant]
     Dosage: 5 MG, DAILY (1/D)
     Route: 048
     Dates: start: 20081222, end: 20090302
  5. TOPLEXIL [Concomitant]
     Route: 048
     Dates: start: 20090211, end: 20090302
  6. PENTACARINAT [Concomitant]
     Dosage: 300 MG, DAILY (1/D)
     Route: 055
  7. VIREAD [Concomitant]
     Dates: end: 20090216
  8. VIREAD [Concomitant]
     Dates: start: 20090101
  9. ISENTRESS [Concomitant]
     Dates: end: 20090216
  10. ISENTRESS [Concomitant]
     Dates: start: 20090101
  11. RETROVIR [Concomitant]
     Dates: end: 20090216
  12. RETROVIR [Concomitant]
     Dates: start: 20090101

REACTIONS (8)
  - CD4 LYMPHOCYTES DECREASED [None]
  - CD4/CD8 RATIO DECREASED [None]
  - ESCHERICHIA SEPSIS [None]
  - MIXED LIVER INJURY [None]
  - PANCYTOPENIA [None]
  - TOXIC SKIN ERUPTION [None]
  - URINARY TRACT INFECTION [None]
  - VIRAL DNA TEST POSITIVE [None]
